FAERS Safety Report 20697247 (Version 2)
Quarter: 2022Q2

REPORT INFORMATION
  Report Type: Report from Study
  Country: US (occurrence: US)
  Receive Date: 20220411
  Receipt Date: 20220416
  Transmission Date: 20220721
  Serious: Yes (Hospitalization, Other)
  Sender: FDA-Public Use
  Company Number: US-UCBSA-2021006335

PATIENT
  Age: 77 Year
  Sex: Female

DRUGS (3)
  1. LEVETIRACETAM [Suspect]
     Active Substance: LEVETIRACETAM
     Indication: Seizure
     Dosage: 750 MG HALF TABLET TWICE DAILY
     Dates: start: 20170721
  2. LEVETIRACETAM [Suspect]
     Active Substance: LEVETIRACETAM
     Dosage: 1500 MILLIGRAM, 2X/DAY (BID)
  3. LEVETIRACETAM [Suspect]
     Active Substance: LEVETIRACETAM
     Dosage: 750 MILLIGRAM, 2X/DAY (BID)
     Dates: end: 20220403

REACTIONS (9)
  - Cardiac operation [Not Recovered/Not Resolved]
  - Post procedural complication [Unknown]
  - Endotracheal intubation complication [Unknown]
  - Malaise [Not Recovered/Not Resolved]
  - Exposure to SARS-CoV-2 [Unknown]
  - Quarantine [Unknown]
  - Oropharyngeal discomfort [Unknown]
  - Product use issue [Unknown]
  - Product dose omission issue [Unknown]

NARRATIVE: CASE EVENT DATE: 20170721
